FAERS Safety Report 18953849 (Version 1)
Quarter: 2021Q1

REPORT INFORMATION
  Report Type: Spontaneous
  Country: NL (occurrence: NL)
  Receive Date: 20210301
  Receipt Date: 20210301
  Transmission Date: 20210420
  Serious: Yes (Life-Threatening)
  Sender: FDA-Public Use
  Company Number: NL-TEVA-2021-NL-1884453

PATIENT
  Age: 58 Year
  Sex: Male
  Weight: 87 kg

DRUGS (14)
  1. CARBASALAATCALCIUM BRUISTABLET  38MG / ASCAL BRISPER BRUISTABLET 38MG [Concomitant]
     Dosage: 38 MG (MILLIGRAM),THERAPY START DATE :ASKU,THERAPY END DATE :ASKU
  2. NADROPARINE INJVLST  9500IE/ML / FRAXIPARINE INJVLST 2850IE/0,3ML  (95 [Concomitant]
     Dosage: INJECTION FLUID, 9500 IU / ML (UNITS PER MILLILITER),THERAPY START DATE :ASKU,THERAPY END DATE :ASKU
  3. REMIFENTANIL INJECTIE/INFUUS / BRAND NAME NOT SPECIFIED [Concomitant]
     Dosage: INJECTION / INFUSION, 1 MG / MG (MILLIGRAMS PER MILLIGRAM),THERAPY START DATE :ASKU,THERAPY END DATE
  4. MIDAZOLAM INJECTIE/INFUUS / BRAND NAME NOT SPECIFIED [Concomitant]
     Dosage: INJECTION / INFUSION ,1 MG/MG (MILLIGRAM PER MILLIGRAM),THERAPY START DATE :ASKU,THERAPY END DATE :A
  5. PARACETAMOL TABLET  500MG / BRAND NAME NOT SPECIFIED [Concomitant]
     Dosage: 500 MG (MILLIGRAM),THERAPY START DATE :ASKU,THERAPY END DATE :ASKU
  6. VORICONAZOL INFUUS / BRAND NAME NOT SPECIFIED [Suspect]
     Active Substance: VORICONAZOLE
     Indication: BRONCHOPULMONARY ASPERGILLOSIS
     Dosage: 800 MILLIGRAM DAILY;
     Dates: start: 20201218, end: 20210107
  7. MACROGOL/ZOUTEN PDR V DRANK (MOVIC/MOLAX/LAXT/GEN) / MOVICOLON POEDER [Concomitant]
     Dosage: POWDER FOR DRINK,THERAPY START DATE :ASKU,THERAPY END DATE :ASKU
  8. INSULINE GEWOON INJVLST 100IE/ML / INSUMAN RAPID INJ 100IE/ML FLACON 5 [Concomitant]
     Dosage: 100 IU / ML (UNITS PER MILLILITER),THERAPY START DATE :ASKU,THERAPY END DATE :ASKU
  9. ROCURONIUM INJECTIE/INFUUS / BRAND NAME NOT SPECIFIED [Concomitant]
     Dosage: INJECTION / INFUSION, 1 MG / MG (MILLIGRAMS PER MILLIGRAM),THERAPY START DATE :ASKU,THERAPY END DATE
  10. FUROSEMIDE INFVLST 10MG/ML / BRAND NAME NOT SPECIFIED [Concomitant]
     Dosage: 10 MG / ML (MILLIGRAMS PER MILLILITER),THERAPY START DATE :ASKU,THERAPY END DATE :ASKU
  11. PROPOFOL INJECTIE/INFUUS / BRAND NAME NOT SPECIFIED [Concomitant]
     Active Substance: PROPOFOL
     Dosage: INJECTION / INFUSION, 1 MG / MG (MILLIGRAMS PER MILLIGRAM),THERAPY START DATE :ASKU,THERAPY END DATE
  12. VORICONAZOL INFUUS / BRAND NAME NOT SPECIFIED [Suspect]
     Active Substance: VORICONAZOLE
     Indication: BRONCHOPULMONARY ASPERGILLOSIS
     Dates: start: 20210109, end: 20210118
  13. SALBUTAMOL/IPRATROPIUM VERNEVELVLST 1/0,2MG/ML / COMBIVENT UNIT DOSE V [Concomitant]
     Dosage: 1 / 0.2 MG / ML (MILLIGRAMS PER MILLILITER),THERAPY START DATE :ASKU,THERAPY END DATE :ASKU
  14. PREDNISON TABLET 20MG / BRAND NAME NOT SPECIFIED [Concomitant]
     Active Substance: PREDNISONE
     Dosage: 20 MG (MILLIGRAM),THERAPY START DATE :ASKU,THERAPY END DATE :ASKU

REACTIONS (3)
  - Ventricular tachycardia [Recovered/Resolved]
  - Supraventricular tachycardia [Recovered/Resolved]
  - Supraventricular tachycardia [Recovered/Resolved]

NARRATIVE: CASE EVENT DATE: 20210107
